FAERS Safety Report 7035671-7 (Version None)
Quarter: 2010Q4

REPORT INFORMATION
  Report Type: 
  Country: None (occurrence: None)
  Receive Date: 20101008
  Receipt Date: 20100930
  Transmission Date: 20110411
  Serious: Yes (Life-Threatening, Other)
  Sender: FDA-Public Use
  Company Number: US-MERCK-1008USA03798

PATIENT
  Age: 51 Year
  Sex: Female
  Weight: 115 kg

DRUGS (6)
  1. JANUVIA [Suspect]
     Indication: DIABETES MELLITUS
     Route: 048
     Dates: start: 20100415, end: 20100825
  2. ZOCOR [Concomitant]
     Route: 048
     Dates: start: 20100721
  3. JANUMET [Concomitant]
     Route: 048
  4. LISINOPRIL [Concomitant]
     Route: 048
  5. AMBIEN [Concomitant]
     Route: 065
     Dates: start: 20100721
  6. PRILOSEC [Concomitant]
     Route: 048

REACTIONS (2)
  - ANAEMIA [None]
  - GLYCOSYLATED HAEMOGLOBIN INCREASED [None]
